FAERS Safety Report 7828221-6 (Version None)
Quarter: 2011Q4

REPORT INFORMATION
  Report Type: 
  Country: None (occurrence: None)
  Receive Date: 20111020
  Receipt Date: 20111013
  Transmission Date: 20120403
  Serious: Yes (Hospitalization)
  Sender: FDA-Public Use
  Company Number: US-UCBSA-043575

PATIENT
  Age: 66 Year
  Sex: Male
  Weight: 72 kg

DRUGS (18)
  1. FIBER [Concomitant]
     Indication: CONSTIPATION
     Dosage: 1 TAB THREE TIMES DAILY
     Dates: start: 20060101
  2. DEXILANT [Concomitant]
     Indication: GASTROOESOPHAGEAL REFLUX DISEASE
     Dates: start: 20090101
  3. COLCHICINE [Concomitant]
     Indication: PROPHYLAXIS
     Dosage: 0.6 MG AS NECESSARY
     Dates: start: 20040101
  4. PRIMIDONE [Concomitant]
     Indication: ESSENTIAL TREMOR
     Dates: start: 20020101
  5. CETIRIZINE HCL [Concomitant]
     Indication: SEASONAL ALLERGY
     Dates: start: 20080101
  6. XOPENEX [Concomitant]
     Indication: CHRONIC OBSTRUCTIVE PULMONARY DISEASE
     Dosage: 1.25/3 ML AS NECESSARY
     Dates: start: 20100630
  7. SIMVASTATIN [Concomitant]
     Indication: HYPERCHOLESTEROLAEMIA
     Dates: start: 20050101
  8. ASMANEX TWISTHALER [Concomitant]
     Indication: CHRONIC OBSTRUCTIVE PULMONARY DISEASE
     Dates: start: 20050101
  9. PREDNISONE [Concomitant]
     Indication: RHEUMATOID ARTHRITIS
     Dates: start: 20050101
  10. CLONAZEPAM [Concomitant]
     Indication: RESTLESS LEGS SYNDROME
     Dates: start: 20050101
  11. TAMSULOSIN HCL [Concomitant]
     Indication: PROSTATOMEGALY
     Dates: start: 20050101
  12. METHOTREXATE [Concomitant]
     Indication: RHEUMATOID ARTHRITIS
     Dates: start: 20100101
  13. CERTOLIZUMAB PEGOL [Suspect]
     Indication: RHEUMATOID ARTHRITIS
     Dosage: 200 GM
     Route: 058
     Dates: start: 20110719, end: 20110928
  14. FOLIC ACID [Concomitant]
     Indication: VITAMIN SUPPLEMENTATION
     Dates: start: 20100101
  15. CALCIUM CARBONATE [Concomitant]
     Indication: MINERAL SUPPLEMENTATION
     Dates: start: 20050101
  16. AMBIEN [Concomitant]
     Indication: INSOMNIA
     Dosage: 10 MG AS NECESSARY
     Dates: start: 20050101
  17. SPIRIVA [Concomitant]
     Indication: CHRONIC OBSTRUCTIVE PULMONARY DISEASE
     Dates: start: 20050101
  18. LORCET-HD [Concomitant]
     Indication: RHEUMATOID ARTHRITIS
     Dosage: 10/650 MG
     Dates: start: 20100101

REACTIONS (2)
  - POSTOPERATIVE WOUND INFECTION [None]
  - ABDOMINAL WOUND DEHISCENCE [None]
